FAERS Safety Report 12445151 (Version 1)
Quarter: 2016Q2

REPORT INFORMATION
  Report Type: Spontaneous
  Country: IT (occurrence: IT)
  Receive Date: 20160607
  Receipt Date: 20160607
  Transmission Date: 20160815
  Serious: Yes (Other)
  Sender: FDA-Public Use
  Company Number: IT-TEVA-666007ACC

PATIENT

DRUGS (1)
  1. PIROXICAM. [Suspect]
     Active Substance: PIROXICAM

REACTIONS (4)
  - Toxic epidermal necrolysis [Unknown]
  - Gastrointestinal disorder [Unknown]
  - Skin disorder [Unknown]
  - Drug ineffective [Unknown]
